FAERS Safety Report 6772618-2 (Version None)
Quarter: 2010Q2

REPORT INFORMATION
  Report Type: 
  Country: None (occurrence: None)
  Receive Date: 20100616
  Receipt Date: 20090526
  Transmission Date: 20101027
  Serious: No
  Sender: FDA-Public Use
  Company Number: US-ASTRAZENECA-2008UW21792

PATIENT
  Age: 68 Year
  Sex: Female
  Weight: 58.5 kg

DRUGS (6)
  1. PULMICORT RESPULES [Suspect]
     Indication: ASTHMA
     Route: 055
  2. PULMICORT RESPULES [Suspect]
     Indication: EMPHYSEMA
     Route: 055
  3. PULMICORT RESPULES [Suspect]
     Indication: CHRONIC OBSTRUCTIVE PULMONARY DISEASE
     Route: 055
  4. CARTIA XT [Concomitant]
     Indication: BLOOD PRESSURE
  5. LEXAPRO [Concomitant]
  6. PERFOROMIST [Concomitant]

REACTIONS (3)
  - DYSPHONIA [None]
  - DYSPNOEA [None]
  - THROAT IRRITATION [None]
